FAERS Safety Report 15561695 (Version 1)
Quarter: 2018Q4

REPORT INFORMATION
  Report Type: Spontaneous
  Country: GB (occurrence: GB)
  Receive Date: 20181029
  Receipt Date: 20181029
  Transmission Date: 20190205
  Serious: Yes (Hospitalization)
  Sender: FDA-Public Use
  Company Number: GB-PFIZER INC-2018434763

PATIENT
  Age: 28 Year
  Sex: Male
  Weight: 106 kg

DRUGS (3)
  1. IBUPROFEN. [Suspect]
     Active Substance: IBUPROFEN
     Indication: TOOTHACHE
     Dosage: 800 MG EVERY 2 HOURS
     Route: 048
     Dates: start: 20181002
  2. NAPROXEN. [Suspect]
     Active Substance: NAPROXEN
     Indication: TOOTHACHE
     Dosage: 500 MG (EVERY 2 HOURS)
     Route: 048
     Dates: start: 20181002
  3. PARACETAMOL [Concomitant]
     Active Substance: ACETAMINOPHEN

REACTIONS (2)
  - Pancreatitis acute [Recovering/Resolving]
  - Overdose [Recovering/Resolving]

NARRATIVE: CASE EVENT DATE: 20181002
